FAERS Safety Report 13254598 (Version 3)
Quarter: 2025Q4

REPORT INFORMATION
  Report Type: Spontaneous
  Country: US (occurrence: US)
  Receive Date: 20170221
  Receipt Date: 20251211
  Transmission Date: 20260118
  Serious: Yes (Hospitalization, Other)
  Sender: RANBAXY
  Company Number: US-MLMSERVICE-20170202-0471249-3

PATIENT
  Age: 47 Year
  Sex: Female

DRUGS (4)
  1. PREDNISONE [Suspect]
     Active Substance: PREDNISONE
     Indication: Immunosuppression
     Dosage: 1 MILLIGRAM/KILOGRAM
     Route: 065
  2. MYCOPHENOLATE MOFETIL [Suspect]
     Active Substance: MYCOPHENOLATE MOFETIL
     Indication: Immunosuppression
     Dosage: 3 G, DAILY
     Route: 065
     Dates: start: 201507
  3. CYCLOPHOSPHAMIDE [Suspect]
     Active Substance: CYCLOPHOSPHAMIDE
     Indication: Immunosuppression
     Route: 065
  4. BELIMUMAB [Concomitant]
     Active Substance: BELIMUMAB
     Indication: Immunosuppression
     Dosage: UNK, MONTHLY
     Route: 065
     Dates: start: 2012

REACTIONS (1)
  - Cytomegalovirus infection [Recovering/Resolving]
